FAERS Safety Report 19193572 (Version 1)
Quarter: 2021Q2

REPORT INFORMATION
  Report Type: Spontaneous
  Country: US (occurrence: US)
  Receive Date: 20210429
  Receipt Date: 20210429
  Transmission Date: 20210717
  Serious: Yes (Hospitalization)
  Sender: FDA-Public Use
  Company Number: US-SA-2021SA137988

PATIENT
  Sex: Male

DRUGS (1)
  1. ICY HOT (MENTHOL) [Suspect]
     Active Substance: MENTHOL
     Indication: MUSCLE SPASMS

REACTIONS (1)
  - Spontaneous penile erection [Unknown]
